FAERS Safety Report 22294018 (Version 1)
Quarter: 2023Q2

REPORT INFORMATION
  Report Type: Report from Study
  Country: CN (occurrence: CN)
  Receive Date: 20230508
  Receipt Date: 20230508
  Transmission Date: 20230721
  Serious: Yes (Hospitalization)
  Sender: FDA-Public Use
  Company Number: CN-ELI_LILLY_AND_COMPANY-CN202304014833

PATIENT
  Age: 65 Year
  Sex: Male

DRUGS (3)
  1. CYRAMZA [Suspect]
     Active Substance: RAMUCIRUMAB
     Indication: Adenocarcinoma gastric
     Dosage: 500 MG, DAILY
     Route: 041
     Dates: start: 20230315
  2. PACLITAXEL [Concomitant]
     Active Substance: PACLITAXEL
     Indication: Adenocarcinoma gastric
     Dosage: 240 MG, DAILY
     Route: 041
     Dates: start: 20230315
  3. TORIPALIMAB [Concomitant]
     Active Substance: TORIPALIMAB
     Indication: Product used for unknown indication
     Dosage: 240 MG, DAILY

REACTIONS (2)
  - Abdominal distension [Recovering/Resolving]
  - Abdominal pain [Recovering/Resolving]

NARRATIVE: CASE EVENT DATE: 20230412
